FAERS Safety Report 17373092 (Version 1)
Quarter: 2020Q1

REPORT INFORMATION
  Report Type: Spontaneous
  Country: GB (occurrence: GB)
  Receive Date: 20200205
  Receipt Date: 20200205
  Transmission Date: 20200409
  Serious: Yes (Hospitalization)
  Sender: FDA-Public Use
  Company Number: GB-AMNEAL PHARMACEUTICALS-2020-AMRX-00360

PATIENT
  Age: 83 Year
  Sex: Female

DRUGS (9)
  1. DOXYCYCLINE. [Concomitant]
     Active Substance: DOXYCYCLINE
     Indication: ASTHMA
     Dosage: 200 MILLIGRAM
     Route: 048
  2. FORMOTEROL FUMARATE [Concomitant]
     Active Substance: FORMOTEROL FUMARATE
     Indication: ASTHMA
     Dosage: 12 MICROGRAM, 2X/DAY
     Route: 065
  3. ALBUTEROL. [Suspect]
     Active Substance: ALBUTEROL
     Indication: ASTHMA
     Dosage: NEBULISED 5 MG
  4. MAGNESIUM SULPHATE ATLANTIC [Concomitant]
     Active Substance: MAGNESIUM SULFATE
     Indication: ASTHMA
     Dosage: UNK
     Route: 042
  5. AMINOPHYLLINE. [Concomitant]
     Active Substance: AMINOPHYLLINE
     Indication: ASTHMA
     Dosage: LOADING DOSE FOLLOWED BY INFUSION
     Route: 065
  6. TERBUTALINE SULPHATE [Concomitant]
     Active Substance: TERBUTALINE SULFATE
     Indication: ASTHMA
     Dosage: 500 MICROGRAM, AS NEEDED
     Route: 065
  7. ALBUTEROL. [Suspect]
     Active Substance: ALBUTEROL
     Dosage: FREQUENCY INCREASED
  8. SYMBICORT [Concomitant]
     Active Substance: BUDESONIDE\FORMOTEROL FUMARATE DIHYDRATE
     Indication: ASTHMA
     Dosage: 400/12, 2 /DAY
     Route: 065
  9. PREDNISOLONE. [Concomitant]
     Active Substance: PREDNISOLONE
     Indication: ASTHMA
     Dosage: 30 MILLIGRAM
     Route: 048

REACTIONS (1)
  - Lactic acidosis [Recovered/Resolved]
